FAERS Safety Report 6127098-7 (Version None)
Quarter: 2009Q1

REPORT INFORMATION
  Report Type: 
  Country: None (occurrence: None)
  Receive Date: 20090320
  Receipt Date: 20090316
  Transmission Date: 20090719
  Serious: Yes (Death)
  Sender: FDA-Public Use
  Company Number: US-B.I. PHARMACEUTICALS,INC./RIDGEFIELD-2009-BP-03350BP

PATIENT
  Sex: Male

DRUGS (4)
  1. ATROVENT HFA [Suspect]
     Indication: DYSPNOEA
  2. COMBIVENT [Suspect]
     Indication: DYSPNOEA
  3. ADVAIR HFA [Concomitant]
     Indication: DYSPNOEA
  4. ALBUTEROL SULFATE [Concomitant]
     Indication: DYSPNOEA

REACTIONS (1)
  - DEATH [None]
